FAERS Safety Report 6647638-9 (Version None)
Quarter: 2010Q1

REPORT INFORMATION
  Report Type: 
  Country: None (occurrence: None)
  Receive Date: 20100323
  Receipt Date: 20100323
  Transmission Date: 20100710
  Serious: No
  Sender: FDA-Public Use
  Company Number: None

PATIENT
  Sex: Female

DRUGS (1)
  1. BUPROPION HCL [Suspect]
     Dosage: 100MG 1/1 BID PO
     Route: 048

REACTIONS (2)
  - MUSCLE SPASMS [None]
  - PRODUCT SUBSTITUTION ISSUE [None]
